FAERS Safety Report 4417992-7 (Version None)
Quarter: 2004Q3

REPORT INFORMATION
  Report Type: 
  Country: None (occurrence: None)
  Receive Date: 20040804
  Receipt Date: 20040803
  Transmission Date: 20050211
  Serious: Yes (Hospitalization)
  Sender: FDA-Public Use
  Company Number: 02100-JPN-04-0198

PATIENT
  Age: 54 Year
  Sex: Female

DRUGS (2)
  1. CILOSTAZOL [Suspect]
     Route: 048
  2. PROPANOLOL HYDROCHLORIDE [Concomitant]

REACTIONS (3)
  - ELECTROCARDIOGRAM QT PROLONGED [None]
  - ELECTROCARDIOGRAM ST-T CHANGE [None]
  - VENTRICULAR FIBRILLATION [None]
